FAERS Safety Report 6998539 (Version 4)
Quarter: 2012Q4

REPORT INFORMATION
  Report Type: 
  Country: JP (occurrence: JP)
  Receive Date: 20090520
  Receipt Date: 20120925
  Transmission Date: 20130627
  Serious: Yes (Death, Other)
  Sender: FDA-Public Use
  Company Number: JP-PFIZER INC-2009205738

PATIENT
  Age: 72 Year
  Sex: Male

DRUGS (2)
  1. VFEND [Suspect]
     Indication: ASPERGILLOSIS
     Dosage: 200 mg, 2x/day
     Route: 048
     Dates: start: 20090416, end: 20090512
  2. FINIBAX [Concomitant]
     Route: 042
     Dates: end: 20090420

REACTIONS (4)
  - Diabetes mellitus [Fatal]
  - Atrial fibrillation [Fatal]
  - Hallucination [Not Recovered/Not Resolved]
  - Hyponatraemia [Unknown]
